FAERS Safety Report 7761288-2 (Version None)
Quarter: 2011Q3

REPORT INFORMATION
  Report Type: 
  Country: None (occurrence: None)
  Receive Date: 20110920
  Receipt Date: 20110913
  Transmission Date: 20111222
  Serious: Yes (Death, Other)
  Sender: FDA-Public Use
  Company Number: JP-CELGENEUS-087-50794-11071047

PATIENT
  Sex: Male

DRUGS (41)
  1. LEVOFLOXACIN [Concomitant]
     Dosage: 500 MILLIGRAM
     Route: 048
     Dates: start: 20110626, end: 20110709
  2. ALBUMIN (HUMAN) [Concomitant]
     Dosage: 50 MILLILITER
     Route: 041
     Dates: start: 20110710, end: 20110710
  3. AMLODIN OD [Concomitant]
     Dosage: 5 MILLIGRAM
     Route: 048
     Dates: start: 20110407, end: 20110629
  4. CANDESARTAN CILEXETIL [Concomitant]
     Dosage: 8 MILLIGRAM
     Route: 048
     Dates: end: 20110629
  5. TRICHLORMETHIAZIDE [Concomitant]
     Dosage: 2 MILLIGRAM
     Route: 048
     Dates: start: 20110407, end: 20110629
  6. MASHI-NIN-GAN [Concomitant]
     Dosage: 6 GRAM
     Route: 048
     Dates: start: 20110407, end: 20110629
  7. AMSULMYLAN [Concomitant]
     Route: 041
     Dates: start: 20110628, end: 20110701
  8. NEUPOGEN [Concomitant]
     Route: 065
  9. ALBUMIN (HUMAN) [Concomitant]
     Dosage: 50 MILLILITER
     Route: 041
     Dates: start: 20110701, end: 20110703
  10. VIDAZA [Suspect]
     Dosage: 75 MILLIGRAM/SQ. METER
     Route: 041
     Dates: start: 20110621, end: 20110624
  11. LANSOPRAZOLE [Concomitant]
     Dosage: 15 MILLIGRAM
     Route: 048
     Dates: end: 20110629
  12. CEFOTIAM HYDROCHLORIDE [Concomitant]
     Route: 065
  13. IMMUNE GLOBULIN INTRAVENOUS (HUMAN) [Concomitant]
     Dosage: 5 GRAM
     Route: 041
     Dates: start: 20110628, end: 20110629
  14. IMMUNE GLOBULIN INTRAVENOUS (HUMAN) [Concomitant]
     Dosage: 5 GRAM
     Route: 041
     Dates: start: 20110630, end: 20110630
  15. SENNOSIDE [Concomitant]
     Dosage: 24 MILLIGRAM
     Route: 048
     Dates: start: 20110423, end: 20110629
  16. GRANISETRON [Concomitant]
     Dosage: 3 MILLIGRAM
     Route: 048
     Dates: start: 20110420, end: 20110428
  17. ALBUMIN (HUMAN) [Concomitant]
     Dosage: 50 MILLILITER
     Route: 041
     Dates: start: 20110704, end: 20110704
  18. ALBUMIN (HUMAN) [Concomitant]
     Dosage: 50 MILLILITER
     Route: 041
     Dates: start: 20110708, end: 20110708
  19. ALBUMIN (HUMAN) [Concomitant]
     Dosage: 50 MILLILITER
     Route: 041
     Dates: start: 20110713, end: 20110713
  20. DOXAZOSIN MESYLATE [Concomitant]
     Dosage: 2 MILLIGRAM
     Route: 048
     Dates: end: 20110629
  21. MAXIPIME [Concomitant]
     Dosage: 2 GRAM
     Route: 041
     Dates: start: 20110507, end: 20110520
  22. MAXIPIME [Concomitant]
     Dosage: 2 GRAM
     Route: 041
     Dates: start: 20110626, end: 20110628
  23. MEROPENEM [Concomitant]
     Dosage: 1 GRAM
     Route: 041
     Dates: start: 20110607, end: 20110617
  24. ELEMENMIC [Concomitant]
     Dosage: 2 MILLILITER
     Route: 041
     Dates: start: 20110701, end: 20110714
  25. VIDAZA [Suspect]
     Dosage: 75 MILLIGRAM/SQ. METER
     Route: 058
     Dates: start: 20110420, end: 20110428
  26. VIDAZA [Suspect]
     Dosage: 75 MILLIGRAM/SQ. METER
     Route: 058
     Dates: start: 20110519, end: 20110527
  27. MUCODYNE [Concomitant]
     Dosage: 1000 MILLIGRAM
     Route: 065
     Dates: start: 20110407, end: 20110629
  28. PACETCOOL [Concomitant]
     Dosage: 2 GRAM
     Route: 041
     Dates: start: 20110501, end: 20110506
  29. MEROPENEM [Concomitant]
     Dosage: .5 GRAM
     Route: 041
     Dates: start: 20110701, end: 20110714
  30. MICAFUNGIN SODIUM [Concomitant]
     Route: 065
  31. VOLTAREN [Concomitant]
     Dosage: 1000 MILLIGRAM
     Route: 054
     Dates: start: 20110406, end: 20110621
  32. COMELIAN [Concomitant]
     Dosage: 100 MILLIGRAM
     Route: 048
     Dates: start: 20110407, end: 20110629
  33. FLUMARIN [Concomitant]
     Dosage: 2 GRAM
     Route: 041
     Dates: start: 20110507, end: 20110520
  34. DEXAMETHASONE SODIUM PHOSPHATE [Concomitant]
     Dosage: 3.3 MILLIGRAM
     Route: 041
     Dates: start: 20110621, end: 20110621
  35. AMPHOTERICIN B [Concomitant]
     Route: 065
  36. NEOAMIYU [Concomitant]
     Dosage: 200 MILLILITER
     Route: 041
     Dates: start: 20110701, end: 20110714
  37. ASPIRIN [Concomitant]
     Dosage: 100 MILLIGRAM
     Route: 048
     Dates: end: 20110629
  38. TELEMINSOFT [Concomitant]
     Dosage: 10 MILLIGRAM
     Route: 054
     Dates: start: 20110423, end: 20110610
  39. GRAN [Concomitant]
     Dosage: 150 MICROGRAM
     Route: 041
     Dates: start: 20110528, end: 20110615
  40. MEROPENEM HYDRATE [Concomitant]
     Route: 065
  41. ALBUMIN (HUMAN) [Concomitant]
     Dosage: 50 MILLILITER
     Route: 041
     Dates: start: 20110706, end: 20110706

REACTIONS (2)
  - RENAL FAILURE ACUTE [None]
  - SEPSIS [None]
